FAERS Safety Report 8270940-4 (Version None)
Quarter: 2012Q2

REPORT INFORMATION
  Report Type: 
  Country: None (occurrence: None)
  Receive Date: 20120410
  Receipt Date: 20120406
  Transmission Date: 20120825
  Serious: Yes (Hospitalization)
  Sender: FDA-Public Use
  Company Number: JP-PFIZER INC-2012087675

PATIENT
  Age: 80 Year
  Sex: Male
  Weight: 59 kg

DRUGS (7)
  1. SODIUM ALGINATE [Concomitant]
     Dosage: 18 MG/DAY
     Dates: start: 20120403
  2. VARENICLINE TARTRATE [Suspect]
     Dosage: 0.5 MG, 2X/DAY
     Route: 048
     Dates: start: 20120402
  3. PRIMOBOLAN-DEPOT INJ [Concomitant]
     Dosage: 15 MG/DAY
  4. SELBEX [Concomitant]
     Dosage: 100 MG/DAY
     Dates: start: 20120402
  5. ALLOPURINOL [Concomitant]
     Dosage: 200 MG/DAY
  6. VARENICLINE TARTRATE [Suspect]
     Dosage: 0.5 MG, 1X/DAY
     Route: 048
     Dates: start: 20120316, end: 20120401
  7. FERRO-GRADUMET [Concomitant]
     Dosage: UNK

REACTIONS (4)
  - NAUSEA [None]
  - HEPATITIS FULMINANT [None]
  - OESOPHAGEAL CARCINOMA [None]
  - VOMITING [None]
